FAERS Safety Report 9180118 (Version 1)
Quarter: 2012Q4

REPORT INFORMATION
  Report Type: 
  Country: US (occurrence: US)
  Receive Date: 20121029
  Receipt Date: 20121029
  Transmission Date: 20130627
  Serious: No
  Sender: FDA-Public Use
  Company Number: US-AMGEN-USASP2012054327

PATIENT
  Age: 22 Year
  Sex: Male

DRUGS (4)
  1. ENBREL [Suspect]
     Indication: PRODUCT USED FOR UNKNOWN INDICATION
     Dosage: 50 mg, qwk
     Route: 058
  2. NABUMETONE BMM PHARMA [Concomitant]
     Dosage: 500 mg, UNK
  3. TESTOSTERONE                       /00103102/ [Concomitant]
     Dosage: 100 mg/ml, UNK
  4. VYVANSE [Concomitant]
     Dosage: 20 mg, UNK

REACTIONS (1)
  - Therapeutic response decreased [Unknown]
